FAERS Safety Report 8577633-4 (Version None)
Quarter: 2012Q3

REPORT INFORMATION
  Report Type: 
  Country: None (occurrence: None)
  Receive Date: 20120807
  Receipt Date: 20120803
  Transmission Date: 20120928
  Serious: Yes (Other)
  Sender: FDA-Public Use
  Company Number: US-PFIZER INC-2012166985

PATIENT
  Age: 68 Year
  Sex: Female
  Weight: 72.562 kg

DRUGS (7)
  1. LANOXIN [Concomitant]
     Indication: ATRIAL FIBRILLATION
     Dosage: UNK
     Dates: start: 20040101
  2. POTASSIUM CHLORIDE [Concomitant]
     Indication: CARDIOMYOPATHY
     Dosage: UNK
     Dates: start: 20040101
  3. LASIX [Concomitant]
     Indication: CARDIOMYOPATHY
     Dosage: 40 MG, 1X/DAY
     Dates: start: 20040101
  4. LIPITOR [Suspect]
     Indication: BLOOD CHOLESTEROL INCREASED
     Dosage: 40 MG, 1X/DAY
     Route: 048
     Dates: start: 20100901, end: 20101101
  5. LIPITOR [Suspect]
     Indication: LIPIDS INCREASED
     Dosage: 20 MG, UNK
     Route: 048
     Dates: start: 20110201
  6. COUMADIN [Concomitant]
     Indication: MITRAL VALVE REPLACEMENT
     Dosage: 2 MG, 1X/DAY
     Route: 048
     Dates: start: 20040101
  7. DIGOXIN [Concomitant]
     Dosage: 0.125 MG, UNK

REACTIONS (3)
  - STRESS [None]
  - WEIGHT DECREASED [None]
  - WEIGHT INCREASED [None]
